FAERS Safety Report 4509239-8 (Version None)
Quarter: 2004Q4

REPORT INFORMATION
  Report Type: 
  Country: None (occurrence: None)
  Receive Date: 20041025
  Receipt Date: 20040630
  Transmission Date: 20050328
  Serious: Yes (Hospitalization, Disabling)
  Sender: FDA-Public Use
  Company Number: US-JNJFOC-20040701070

PATIENT
  Age: 47 Year
  Sex: Female
  Weight: 67.1324 kg

DRUGS (37)
  1. INFLIXIMAB (INFLIXIMAB, RECOMBINANT) LYOPHILIZED POWDER [Suspect]
     Indication: CROHN'S DISEASE
     Dosage: INTRAVENOUS; 5 MG/KG, INTRAVENOUS
     Route: 042
     Dates: start: 19981102
  2. INFLIXIMAB (INFLIXIMAB, RECOMBINANT) LYOPHILIZED POWDER [Suspect]
     Indication: CROHN'S DISEASE
     Dosage: INTRAVENOUS; 5 MG/KG, INTRAVENOUS
     Route: 042
     Dates: start: 19990802
  3. INFLIXIMAB (INFLIXIMAB, RECOMBINANT) LYOPHILIZED POWDER [Suspect]
     Indication: CROHN'S DISEASE
     Dosage: INTRAVENOUS; 5 MG/KG, INTRAVENOUS
     Route: 042
     Dates: start: 20000203
  4. INFLIXIMAB (INFLIXIMAB, RECOMBINANT) LYOPHILIZED POWDER [Suspect]
     Indication: CROHN'S DISEASE
     Dosage: INTRAVENOUS; 5 MG/KG, INTRAVENOUS
     Route: 042
     Dates: start: 20000405
  5. INFLIXIMAB (INFLIXIMAB, RECOMBINANT) LYOPHILIZED POWDER [Suspect]
     Indication: CROHN'S DISEASE
     Dosage: INTRAVENOUS; 5 MG/KG, INTRAVENOUS
     Route: 042
     Dates: start: 20000606
  6. INFLIXIMAB (INFLIXIMAB, RECOMBINANT) LYOPHILIZED POWDER [Suspect]
     Indication: CROHN'S DISEASE
     Dosage: INTRAVENOUS; 5 MG/KG, INTRAVENOUS
     Route: 042
     Dates: start: 20000803
  7. INFLIXIMAB (INFLIXIMAB, RECOMBINANT) LYOPHILIZED POWDER [Suspect]
     Indication: CROHN'S DISEASE
     Dosage: INTRAVENOUS; 5 MG/KG, INTRAVENOUS
     Route: 042
     Dates: start: 20001010
  8. INFLIXIMAB (INFLIXIMAB, RECOMBINANT) LYOPHILIZED POWDER [Suspect]
     Indication: CROHN'S DISEASE
     Dosage: INTRAVENOUS; 5 MG/KG, INTRAVENOUS
     Route: 042
     Dates: start: 20010205
  9. INFLIXIMAB (INFLIXIMAB, RECOMBINANT) LYOPHILIZED POWDER [Suspect]
     Indication: CROHN'S DISEASE
     Dosage: INTRAVENOUS; 5 MG/KG, INTRAVENOUS
     Route: 042
     Dates: start: 20010404
  10. INFLIXIMAB (INFLIXIMAB, RECOMBINANT) LYOPHILIZED POWDER [Suspect]
     Indication: CROHN'S DISEASE
     Dosage: INTRAVENOUS; 5 MG/KG, INTRAVENOUS
     Route: 042
     Dates: start: 20010604
  11. INFLIXIMAB (INFLIXIMAB, RECOMBINANT) LYOPHILIZED POWDER [Suspect]
     Indication: CROHN'S DISEASE
     Dosage: INTRAVENOUS; 5 MG/KG, INTRAVENOUS
     Route: 042
     Dates: start: 20010731
  12. INFLIXIMAB (INFLIXIMAB, RECOMBINANT) LYOPHILIZED POWDER [Suspect]
     Indication: CROHN'S DISEASE
     Dosage: INTRAVENOUS; 5 MG/KG, INTRAVENOUS
     Route: 042
     Dates: start: 20010925
  13. INFLIXIMAB (INFLIXIMAB, RECOMBINANT) LYOPHILIZED POWDER [Suspect]
     Indication: CROHN'S DISEASE
     Dosage: INTRAVENOUS; 5 MG/KG, INTRAVENOUS
     Route: 042
     Dates: start: 20011121
  14. INFLIXIMAB (INFLIXIMAB, RECOMBINANT) LYOPHILIZED POWDER [Suspect]
     Indication: CROHN'S DISEASE
     Dosage: INTRAVENOUS; 5 MG/KG, INTRAVENOUS
     Route: 042
     Dates: start: 20020130
  15. INFLIXIMAB (INFLIXIMAB, RECOMBINANT) LYOPHILIZED POWDER [Suspect]
     Indication: CROHN'S DISEASE
     Dosage: INTRAVENOUS; 5 MG/KG, INTRAVENOUS
     Route: 042
     Dates: start: 20020321
  16. INFLIXIMAB (INFLIXIMAB, RECOMBINANT) LYOPHILIZED POWDER [Suspect]
     Indication: CROHN'S DISEASE
     Dosage: INTRAVENOUS; 5 MG/KG, INTRAVENOUS
     Route: 042
     Dates: start: 20020514
  17. INFLIXIMAB (INFLIXIMAB, RECOMBINANT) LYOPHILIZED POWDER [Suspect]
     Indication: CROHN'S DISEASE
     Dosage: INTRAVENOUS; 5 MG/KG, INTRAVENOUS
     Route: 042
     Dates: start: 20020717
  18. INFLIXIMAB (INFLIXIMAB, RECOMBINANT) LYOPHILIZED POWDER [Suspect]
     Indication: CROHN'S DISEASE
     Dosage: INTRAVENOUS; 5 MG/KG, INTRAVENOUS
     Route: 042
     Dates: start: 20020828
  19. INFLIXIMAB (INFLIXIMAB, RECOMBINANT) LYOPHILIZED POWDER [Suspect]
     Indication: CROHN'S DISEASE
     Dosage: INTRAVENOUS; 5 MG/KG, INTRAVENOUS
     Route: 042
     Dates: start: 20021009
  20. INFLIXIMAB (INFLIXIMAB, RECOMBINANT) LYOPHILIZED POWDER [Suspect]
     Indication: CROHN'S DISEASE
     Dosage: INTRAVENOUS; 5 MG/KG, INTRAVENOUS
     Route: 042
     Dates: start: 20021120
  21. INFLIXIMAB (INFLIXIMAB, RECOMBINANT) LYOPHILIZED POWDER [Suspect]
     Indication: CROHN'S DISEASE
     Dosage: INTRAVENOUS; 5 MG/KG, INTRAVENOUS
     Route: 042
     Dates: start: 20030116
  22. INFLIXIMAB (INFLIXIMAB, RECOMBINANT) LYOPHILIZED POWDER [Suspect]
     Indication: CROHN'S DISEASE
     Dosage: INTRAVENOUS; 5 MG/KG, INTRAVENOUS
     Route: 042
     Dates: start: 20030226
  23. INFLIXIMAB (INFLIXIMAB, RECOMBINANT) LYOPHILIZED POWDER [Suspect]
     Indication: CROHN'S DISEASE
     Dosage: INTRAVENOUS; 5 MG/KG, INTRAVENOUS
     Route: 042
     Dates: start: 20030404
  24. INFLIXIMAB (INFLIXIMAB, RECOMBINANT) LYOPHILIZED POWDER [Suspect]
     Indication: CROHN'S DISEASE
     Dosage: INTRAVENOUS; 5 MG/KG, INTRAVENOUS
     Route: 042
     Dates: start: 20030516
  25. INFLIXIMAB (INFLIXIMAB, RECOMBINANT) LYOPHILIZED POWDER [Suspect]
     Indication: CROHN'S DISEASE
     Dosage: INTRAVENOUS; 5 MG/KG, INTRAVENOUS
     Route: 042
     Dates: start: 20030626
  26. INFLIXIMAB (INFLIXIMAB, RECOMBINANT) LYOPHILIZED POWDER [Suspect]
     Indication: CROHN'S DISEASE
     Dosage: INTRAVENOUS; 5 MG/KG, INTRAVENOUS
     Route: 042
     Dates: start: 20030808
  27. INFLIXIMAB (INFLIXIMAB, RECOMBINANT) LYOPHILIZED POWDER [Suspect]
     Indication: CROHN'S DISEASE
     Dosage: INTRAVENOUS; 5 MG/KG, INTRAVENOUS
     Route: 042
     Dates: start: 20030919
  28. INFLIXIMAB (INFLIXIMAB, RECOMBINANT) LYOPHILIZED POWDER [Suspect]
     Indication: CROHN'S DISEASE
     Dosage: INTRAVENOUS; 5 MG/KG, INTRAVENOUS
     Route: 042
     Dates: start: 20031030
  29. INFLIXIMAB (INFLIXIMAB, RECOMBINANT) LYOPHILIZED POWDER [Suspect]
     Indication: CROHN'S DISEASE
     Dosage: INTRAVENOUS; 5 MG/KG, INTRAVENOUS
     Route: 042
     Dates: start: 20031211
  30. INFLIXIMAB (INFLIXIMAB, RECOMBINANT) LYOPHILIZED POWDER [Suspect]
     Indication: CROHN'S DISEASE
     Dosage: INTRAVENOUS; 5 MG/KG, INTRAVENOUS
     Route: 042
     Dates: start: 20040122
  31. INFLIXIMAB (INFLIXIMAB, RECOMBINANT) LYOPHILIZED POWDER [Suspect]
     Indication: CROHN'S DISEASE
     Dosage: INTRAVENOUS; 5 MG/KG, INTRAVENOUS
     Route: 042
     Dates: start: 20040304
  32. INFLIXIMAB (INFLIXIMAB, RECOMBINANT) LYOPHILIZED POWDER [Suspect]
     Indication: CROHN'S DISEASE
     Dosage: INTRAVENOUS; 5 MG/KG, INTRAVENOUS
     Route: 042
     Dates: start: 20040415
  33. INFLIXIMAB (INFLIXIMAB, RECOMBINANT) LYOPHILIZED POWDER [Suspect]
     Indication: CROHN'S DISEASE
     Dosage: INTRAVENOUS; 5 MG/KG, INTRAVENOUS
     Route: 042
     Dates: start: 20040527
  34. NARCOTIC ANALGESICS (ANALGESICS) [Concomitant]
  35. FOLIC ACID [Concomitant]
  36. PREVACID [Concomitant]
  37. ULTRAM (TRAMADOL HYDROCHLORDE) UNSPECIFIED [Concomitant]

REACTIONS (4)
  - ABDOMINAL PAIN UPPER [None]
  - HEADACHE [None]
  - INFUSION RELATED REACTION [None]
  - RASH [None]
